FAERS Safety Report 19283703 (Version 6)
Quarter: 2025Q4

REPORT INFORMATION
  Report Type: Spontaneous
  Country: JP (occurrence: JP)
  Receive Date: 20210520
  Receipt Date: 20251230
  Transmission Date: 20260117
  Serious: Yes (Hospitalization, Other)
  Sender: JOHNSON AND JOHNSON
  Company Number: JP-MTPC-MTPC2021-0012183

PATIENT
  Age: 27 Year
  Sex: Female

DRUGS (6)
  1. REMICADE [Suspect]
     Active Substance: INFLIXIMAB
     Indication: Colitis ulcerative
     Dosage: 300 MILLIGRAM, QD
     Route: 041
     Dates: start: 20200723
  2. REMICADE [Suspect]
     Active Substance: INFLIXIMAB
     Dosage: 300 MILLIGRAM, QD
     Route: 041
     Dates: start: 20210407, end: 20210407
  3. IMURAN [Suspect]
     Active Substance: AZATHIOPRINE
     Indication: Colitis ulcerative
     Dosage: UNK
  4. VEDOLIZUMAB [Concomitant]
     Active Substance: VEDOLIZUMAB
     Indication: Product used for unknown indication
     Dosage: UNK
  5. MESALAMINE [Concomitant]
     Active Substance: MESALAMINE
     Indication: Colitis ulcerative
     Dosage: 4800 MILLIGRAM, QD
     Route: 048
     Dates: start: 20180920
  6. CLOSTRIDIUM BUTYRICUM [Concomitant]
     Indication: Colitis ulcerative
     Dosage: 3 DOSAGE FORM, QD
     Route: 048
     Dates: start: 20180920

REACTIONS (5)
  - Blood creatine phosphokinase increased [Recovering/Resolving]
  - Febrile neutropenia [Recovering/Resolving]
  - Haemophagocytic lymphohistiocytosis [Recovering/Resolving]
  - Hepatic enzyme increased [Recovering/Resolving]
  - IgA nephropathy [Recovering/Resolving]

NARRATIVE: CASE EVENT DATE: 20210502
